FAERS Safety Report 5827985-0 (Version None)
Quarter: 2008Q3

REPORT INFORMATION
  Report Type: 
  Country: None (occurrence: None)
  Receive Date: 20080728
  Receipt Date: 20080715
  Transmission Date: 20090109
  Serious: Yes (Other)
  Sender: FDA-Public Use
  Company Number: US024122

PATIENT
  Sex: Female

DRUGS (1)
  1. PROVIGIL [Suspect]
     Dosage: 200 MG, ORAL
     Route: 048
     Dates: end: 20080101

REACTIONS (3)
  - RESTLESSNESS [None]
  - TARDIVE DYSKINESIA [None]
  - THINKING ABNORMAL [None]
